FAERS Safety Report 7073523-7 (Version None)
Quarter: 2010Q4

REPORT INFORMATION
  Report Type: 
  Country: None (occurrence: None)
  Receive Date: 20101029
  Receipt Date: 20100702
  Transmission Date: 20110411
  Serious: No
  Sender: FDA-Public Use
  Company Number: A0868407A

PATIENT
  Age: 63 Year
  Sex: Male

DRUGS (5)
  1. ADVAIR DISKUS 100/50 [Suspect]
     Indication: CHRONIC OBSTRUCTIVE PULMONARY DISEASE
     Dosage: 1PUFF TWICE PER DAY
     Route: 055
     Dates: end: 20100301
  2. HYDROCODONE [Concomitant]
  3. PRILOSEC [Concomitant]
  4. MELOXICAM [Concomitant]
  5. UNSPECIFIED MEDICATIONS [Concomitant]

REACTIONS (2)
  - CANDIDIASIS [None]
  - TONGUE DISCOLOURATION [None]
